FAERS Safety Report 7454355-4 (Version None)
Quarter: 2011Q2

REPORT INFORMATION
  Report Type: 
  Country: None (occurrence: None)
  Receive Date: 20110503
  Receipt Date: 20110419
  Transmission Date: 20111010
  Serious: Yes (Death)
  Sender: FDA-Public Use
  Company Number: US-RANBAXY-2011US-44023

PATIENT
  Age: 57 Year
  Sex: Female

DRUGS (1)
  1. METFFORMIN HYDROCHLORIDE [Suspect]
     Indication: HYPERGLYCAEMIA
     Dosage: UNK, UNK
     Route: 065

REACTIONS (5)
  - LACTIC ACIDOSIS [None]
  - VENTRICULAR TACHYCARDIA [None]
  - TOXICITY TO VARIOUS AGENTS [None]
  - CARDIAC ARREST [None]
  - MYOCARDIAL INFARCTION [None]
